FAERS Safety Report 4623988-2 (Version None)
Quarter: 2005Q1

REPORT INFORMATION
  Report Type: 
  Country: None (occurrence: None)
  Receive Date: 20050331
  Receipt Date: 20050316
  Transmission Date: 20050727
  Serious: Yes (Hospitalization)
  Sender: FDA-Public Use
  Company Number: US-GLAXOSMITHKLINE-A0549949A

PATIENT
  Sex: Female

DRUGS (2)
  1. BC HEADACHE POWDER [Suspect]
     Indication: PAIN
     Route: 048
     Dates: start: 19970101
  2. SYNTHROID [Concomitant]
     Indication: HYPOTHYROIDISM

REACTIONS (1)
  - BENIGN UTERINE NEOPLASM [None]
